FAERS Safety Report 6890289-1 (Version None)
Quarter: 2010Q3

REPORT INFORMATION
  Report Type: 
  Country: None (occurrence: None)
  Receive Date: 20100730
  Receipt Date: 20080923
  Transmission Date: 20110219
  Serious: Yes (Other)
  Sender: FDA-Public Use
  Company Number: US-PFIZER INC-2008080112

PATIENT
  Age: 51 Year
  Sex: Male
  Weight: 86.2 kg

DRUGS (2)
  1. LIPITOR [Suspect]
     Dates: end: 20070701
  2. EFUDEX [Suspect]
     Indication: EPHELIDES
     Dosage: 5%,BID
     Route: 061
     Dates: start: 20070601, end: 20070701

REACTIONS (8)
  - LETHARGY [None]
  - MALAISE [None]
  - NAUSEA [None]
  - OEDEMA PERIPHERAL [None]
  - PAIN IN EXTREMITY [None]
  - SKIN DISORDER [None]
  - SKIN ULCER [None]
  - TESTICULAR PAIN [None]
